FAERS Safety Report 10155399 (Version 1)
Quarter: 2014Q2

REPORT INFORMATION
  Report Type: Spontaneous
  Country: US (occurrence: US)
  Receive Date: 20140506
  Receipt Date: 20140506
  Transmission Date: 20141212
  Serious: Yes (Death, Hospitalization, Other)
  Sender: FDA-Public Use
  Company Number: US-TEVA-479526USA

PATIENT
  Age: 78 Year
  Sex: Male

DRUGS (3)
  1. PROAIR HFA [Suspect]
     Indication: EMPHYSEMA
     Route: 055
  2. ANTIHYPERTENSIVES [Concomitant]
     Indication: HYPERTENSION
  3. CHOLESTEROL [Concomitant]
     Indication: BLOOD CHOLESTEROL INCREASED

REACTIONS (3)
  - Emphysema [Fatal]
  - Dyspnoea [Not Recovered/Not Resolved]
  - Blindness [Not Recovered/Not Resolved]
